FAERS Safety Report 12609396 (Version 1)
Quarter: 2016Q3

REPORT INFORMATION
  Report Type: Report from Study
  Country: US (occurrence: US)
  Receive Date: 20160801
  Receipt Date: 20160801
  Transmission Date: 20161109
  Serious: No
  Sender: FDA-Public Use
  Company Number: US-AMGEN-USASL2016095166

PATIENT
  Age: 51 Year
  Sex: Female

DRUGS (2)
  1. ENBREL [Suspect]
     Active Substance: ETANERCEPT
     Indication: JUVENILE IDIOPATHIC ARTHRITIS
     Dosage: 50 MG, UNK
     Route: 065
     Dates: start: 20030420
  2. ENBREL [Suspect]
     Active Substance: ETANERCEPT
     Dosage: UNK,UNK,UNK
     Route: 065

REACTIONS (2)
  - Musculoskeletal disorder [Unknown]
  - Injection site pain [Unknown]
